FAERS Safety Report 6039083-4 (Version None)
Quarter: 2009Q1

REPORT INFORMATION
  Report Type: 
  Country: None (occurrence: None)
  Receive Date: 20090115
  Receipt Date: 20090106
  Transmission Date: 20090719
  Serious: Yes (Other)
  Sender: FDA-Public Use
  Company Number: US-PFIZER INC-2009152607

PATIENT
  Sex: Female
  Weight: 63.502 kg

DRUGS (1)
  1. DEPO-PROVERA [Suspect]
     Indication: CONTRACEPTION
     Dates: start: 19910101

REACTIONS (3)
  - ARTHRALGIA [None]
  - BONE DENSITY DECREASED [None]
  - HIP FRACTURE [None]
